FAERS Safety Report 15987961 (Version 2)
Quarter: 2019Q1

REPORT INFORMATION
  Report Type: Spontaneous
  Country: CA (occurrence: CA)
  Receive Date: 20190220
  Receipt Date: 20190225
  Transmission Date: 20190418
  Serious: Yes (Hospitalization, Congenital Anomaly, Other)
  Sender: FDA-Public Use
  Company Number: CA-TEVA-2019-CA-1014761

PATIENT
  Age: 25 Year
  Sex: Female

DRUGS (5)
  1. METHOTREXATE INJECTION, USP [Suspect]
     Active Substance: METHOTREXATE
     Indication: ECTOPIC PREGNANCY
     Route: 051
  2. ABSORBABLE GELATIN SPONGE [Concomitant]
     Indication: THERAPEUTIC EMBOLISATION
  3. LEUCOVORIN. [Suspect]
     Active Substance: LEUCOVORIN
     Indication: ECTOPIC PREGNANCY
     Route: 065
  4. POTASSIUM CHLORIDE. [Suspect]
     Active Substance: POTASSIUM CHLORIDE
     Indication: ECTOPIC PREGNANCY
     Dosage: ONCE
     Route: 065
  5. METHOTREXATE INJECTION, USP [Suspect]
     Active Substance: METHOTREXATE
     Route: 051

REACTIONS (5)
  - Abdominal pain [Unknown]
  - Vaginal haemorrhage [Unknown]
  - Arteriovenous malformation [Unknown]
  - Product use in unapproved indication [Unknown]
  - Exposure during pregnancy [Unknown]
